FAERS Safety Report 20741610 (Version 1)
Quarter: 2022Q2

REPORT INFORMATION
  Report Type: Spontaneous
  Country: US (occurrence: US)
  Receive Date: 20220422
  Receipt Date: 20220422
  Transmission Date: 20220721
  Serious: No
  Sender: FDA-Public Use
  Company Number: US-BIOMARINAP-US-2022-142777

PATIENT
  Sex: Male

DRUGS (2)
  1. KUVAN [Suspect]
     Active Substance: SAPROPTERIN DIHYDROCHLORIDE
     Indication: Phenylketonuria
     Dosage: 200 MILLIGRAM, QD
     Route: 048
     Dates: start: 20210509
  2. PERIFLEX [Concomitant]
     Indication: Product used for unknown indication

REACTIONS (2)
  - Gastroenteritis viral [Unknown]
  - Amino acid level abnormal [Unknown]
